FAERS Safety Report 6134186-8 (Version None)
Quarter: 2009Q1

REPORT INFORMATION
  Report Type: 
  Country: None (occurrence: None)
  Receive Date: 20090326
  Receipt Date: 20090313
  Transmission Date: 20090719
  Serious: Yes (Hospitalization)
  Sender: FDA-Public Use
  Company Number: BE-GENENTECH-247633

PATIENT
  Sex: Female
  Weight: 57 kg

DRUGS (12)
  1. OMALIZUMAB [Suspect]
     Indication: ASTHMA
     Dosage: 300 MG, 1/MONTH
     Route: 058
     Dates: start: 20060710, end: 20070125
  2. ZITHROMAX [Concomitant]
     Indication: DRUG USE FOR UNKNOWN INDICATION
  3. FOSAMAX [Concomitant]
     Indication: DRUG USE FOR UNKNOWN INDICATION
  4. SINGULAIR [Concomitant]
     Indication: DRUG USE FOR UNKNOWN INDICATION
  5. QVAR 40 [Concomitant]
     Indication: DRUG USE FOR UNKNOWN INDICATION
  6. SYMBICORT [Concomitant]
     Indication: DRUG USE FOR UNKNOWN INDICATION
  7. NEXIUM [Concomitant]
     Indication: DRUG USE FOR UNKNOWN INDICATION
  8. TACROLIMUS [Concomitant]
     Indication: DRUG USE FOR UNKNOWN INDICATION
  9. DUOVENT [Concomitant]
     Indication: DRUG USE FOR UNKNOWN INDICATION
  10. ENBREL [Concomitant]
     Indication: DRUG USE FOR UNKNOWN INDICATION
  11. SPIRIVA [Concomitant]
     Indication: DRUG USE FOR UNKNOWN INDICATION
  12. SYNACORT [Concomitant]
     Indication: DRUG USE FOR UNKNOWN INDICATION
     Dosage: UNK
     Dates: start: 20060307

REACTIONS (1)
  - ASTHMA [None]
